FAERS Safety Report 12530161 (Version 1)
Quarter: 2016Q3

REPORT INFORMATION
  Report Type: Spontaneous
  Country: US (occurrence: None)
  Receive Date: 20160705
  Receipt Date: 20160705
  Transmission Date: 20161109
  Serious: Yes (Other)
  Sender: FDA-Public Use
  Company Number: None

PATIENT
  Age: 7 Month
  Sex: Male
  Weight: 9.53 kg

DRUGS (1)
  1. RANITIDINE 15MG/ML SYRUP SILARX PHARM [Suspect]
     Active Substance: RANITIDINE HYDROCHLORIDE
     Indication: GASTROOESOPHAGEAL REFLUX DISEASE
     Route: 048

REACTIONS (8)
  - Abnormal behaviour [None]
  - Tic [None]
  - Staring [None]
  - Developmental delay [None]
  - Choking [None]
  - Cough [None]
  - Seizure like phenomena [None]
  - Speech disorder [None]

NARRATIVE: CASE EVENT DATE: 20160401
